FAERS Safety Report 8025063-6 (Version None)
Quarter: 2011Q4

REPORT INFORMATION
  Report Type: 
  Country: None (occurrence: None)
  Receive Date: 20111130
  Receipt Date: 20101206
  Transmission Date: 20120403
  Serious: Yes (Other)
  Sender: FDA-Public Use
  Company Number: TRP_07440_2010

PATIENT
  Age: 39 Year
  Sex: Female
  Weight: 100.6985 kg

DRUGS (10)
  1. RIBAVIRIN [Suspect]
     Indication: HEPATITIS C
     Dosage: 1200 MILLIGRAM DAILY, ORAL
     Route: 048
     Dates: start: 20100909, end: 20101203
  2. RIBAVIRIN [Suspect]
     Indication: HEPATITIS C
     Dosage: 800 MILLIGRAM DAILY, ORAL
     Route: 048
     Dates: start: 20101203, end: 20101206
  3. XIFAXAN [Concomitant]
  4. INTERFERON ALFACON-1 (INTERFERON ALFACON-1) (15 MICROGRAM) [Suspect]
     Indication: HEPATITIS C
     Dosage: 15 MCG, 1 IN 1 D, SUBCUTANEOUS ; 12 MCG, 1 IN 1 D, SUBCUTANEOUS
     Route: 058
     Dates: start: 20101013
  5. INTERFERON ALFACON-1 (INTERFERON ALFACON-1) (15 MICROGRAM) [Suspect]
     Indication: HEPATITIS C
     Dosage: 15 MCG, 1 IN 1 D, SUBCUTANEOUS ; 12 MCG, 1 IN 1 D, SUBCUTANEOUS
     Route: 058
     Dates: start: 20100909, end: 20101012
  6. TRAMADOL HCL [Concomitant]
  7. NADOLOL [Concomitant]
  8. URSODIOL [Concomitant]
  9. PANTOPRAZOLE [Concomitant]
  10. SERTRALINE HYDROCHLORIDE [Concomitant]

REACTIONS (1)
  - ANAEMIA [None]
